FAERS Safety Report 5205977-2 (Version None)
Quarter: 2007Q1

REPORT INFORMATION
  Report Type: 
  Country: None (occurrence: None)
  Receive Date: 20070111
  Receipt Date: 20070103
  Transmission Date: 20070707
  Serious: Yes (Hospitalization)
  Sender: FDA-Public Use
  Company Number: US-JNJFOC-20070100988

PATIENT
  Sex: Female
  Weight: 65.77 kg

DRUGS (18)
  1. DURAGESIC-100 [Suspect]
     Indication: PAIN
     Route: 062
  2. SALAGEN [Concomitant]
     Indication: SJOGREN'S SYNDROME
     Route: 048
  3. NEURONTIN [Concomitant]
     Indication: NEURALGIA
     Route: 048
  4. NEURONTIN [Concomitant]
     Indication: INSOMNIA
     Route: 048
  5. AZULFIDINE [Concomitant]
     Indication: ARTHRITIS
     Route: 048
  6. TRAZODONE HCL [Concomitant]
     Indication: SLEEP DISORDER
     Route: 048
  7. LEVOXYL [Concomitant]
     Indication: HYPOTHYROIDISM
     Route: 048
  8. SEPTRA DS [Concomitant]
     Indication: ANTIBIOTIC PROPHYLAXIS
     Dosage: 1 ONCE A DAY (AS NEEDED)
     Route: 048
  9. PHENERGAN [Concomitant]
     Indication: NAUSEA
     Route: 048
  10. ESTRADIAL [Concomitant]
     Indication: HORMONE REPLACEMENT THERAPY
     Route: 048
  11. OXYCODONE HCL [Concomitant]
     Indication: BREAKTHROUGH PAIN
     Route: 048
  12. SALSALATE [Concomitant]
     Indication: ARTHRITIS
     Route: 048
  13. FOSAMAX [Concomitant]
     Indication: OSTEOARTHRITIS
     Route: 048
  14. MEDROL [Concomitant]
     Indication: PRURITUS
     Dosage: START DATE 1990'S
     Route: 048
  15. PREDNISONE TAB [Concomitant]
     Indication: PRURITUS
     Dosage: 1990'S
     Route: 048
  16. ATARAX [Concomitant]
     Indication: SEASONAL ALLERGY
     Route: 048
  17. ZYRTEC [Concomitant]
     Indication: SEASONAL ALLERGY
     Route: 048
  18. HUMIRA [Concomitant]
     Indication: ARTHRITIS
     Dosage: 40/0.6 ML
     Route: 050

REACTIONS (9)
  - BLADDER SPASM [None]
  - BLOOD CHOLESTEROL INCREASED [None]
  - DEPRESSION [None]
  - DRUG WITHDRAWAL SYNDROME [None]
  - INCORRECT DRUG ADMINISTRATION DURATION [None]
  - OEDEMA [None]
  - PSORIASIS [None]
  - URINARY INCONTINENCE [None]
  - VULVOVAGINAL DRYNESS [None]
